FAERS Safety Report 8404827-0 (Version None)
Quarter: 2012Q2

REPORT INFORMATION
  Report Type: 
  Country: None (occurrence: None)
  Receive Date: 20120601
  Receipt Date: 20120522
  Transmission Date: 20120825
  Serious: Yes (Other)
  Sender: FDA-Public Use
  Company Number: US-BAYER-2012-053432

PATIENT
  Age: 80 Year
  Sex: Female

DRUGS (10)
  1. CARDURA [Concomitant]
  2. GABAPENTIN [Concomitant]
     Indication: NEUROPATHY PERIPHERAL
     Dosage: 600 MG, TID
     Route: 048
  3. COUMADIN [Concomitant]
  4. TOPROL-XL [Concomitant]
  5. ZESTRIL [Concomitant]
  6. XANAX [Concomitant]
     Dosage: UNK UNK, PRN
  7. HYDROCHLOROTHIAZIDE [Concomitant]
  8. URSO 250 [Concomitant]
  9. ASPIRIN [Suspect]
  10. NEURONTIN [Concomitant]
     Dosage: 600 MG, TID

REACTIONS (2)
  - DRUG HYPERSENSITIVITY [None]
  - ANGIOEDEMA [None]
